FAERS Safety Report 5005559-1 (Version None)
Quarter: 2006Q2

REPORT INFORMATION
  Report Type: 
  Country: None (occurrence: None)
  Receive Date: 20060515
  Receipt Date: 20060508
  Transmission Date: 20061013
  Serious: Yes (Death)
  Sender: FDA-Public Use
  Company Number: 2006-142230-NL

PATIENT
  Age: 68 Year
  Sex: Female

DRUGS (2)
  1. DEXAMETHASONE TAB [Suspect]
     Indication: METASTASES TO LIVER
     Dosage: DF ORAL
     Route: 048
     Dates: end: 20060302
  2. DEXAMETHASONE TAB [Suspect]
     Indication: RECTAL CANCER
     Dosage: DF ORAL
     Route: 048
     Dates: end: 20060302

REACTIONS (4)
  - HYPERGLYCAEMIC HYPEROSMOLAR NONKETOTIC SYNDROME [None]
  - MALIGNANT NEOPLASM PROGRESSION [None]
  - METASTASES TO LIVER [None]
  - RECTAL CANCER [None]
